FAERS Safety Report 8798147 (Version 1)
Quarter: 2012Q4

REPORT INFORMATION
  Report Type: 
  Country: US (occurrence: US)
  Receive Date: 20120920
  Receipt Date: 20120920
  Transmission Date: 20130627
  Serious: Yes (Death)
  Sender: FDA-Public Use
  Company Number: US-ROCHE-1093401

PATIENT
  Sex: Female

DRUGS (4)
  1. AVASTIN [Suspect]
     Indication: RECTOSIGMOID CANCER
     Route: 065
  2. ERBITUX [Concomitant]
  3. CAMPTOSAR [Concomitant]
  4. IRINOTECAN [Concomitant]

REACTIONS (1)
  - Death [Fatal]
